FAERS Safety Report 8662089 (Version 3)
Quarter: 2013Q1

REPORT INFORMATION
  Report Type: Spontaneous
  Country: US (occurrence: None)
  Receive Date: 20120627
  Receipt Date: 20121121
  Transmission Date: 20140127
  Serious: No
  Sender: FDA-Public Use
  Company Number: JPI-P-021995

PATIENT
  Age: 34 Year
  Sex: Female

DRUGS (13)
  1. XYREM [Suspect]
     Dosage: 6 GM (3 GM, 2 IN 1 D), ORAL
     Route: 048
     Dates: start: 20050804
  2. ZONISAMIDE [Concomitant]
  3. ARMODAFINIL [Concomitant]
  4. NORTRIPTYLINE [Concomitant]
  5. CELECOXIB [Concomitant]
  6. RIZATRIPTAN [Concomitant]
  7. CETIRIZINE [Concomitant]
  8. KLONOPIN [Concomitant]
  9. PREGABALIN [Concomitant]
  10. MELATONIN [Concomitant]
  11. METHOCARBAMOL [Concomitant]
  12. HYDROCODONE BITARTRATE AND ACETAMINOPHEN [Concomitant]
  13. OXYCODONE HYDROCHLORIDE [Concomitant]

REACTIONS (13)
  - Pelvic pain [None]
  - Vaginal haemorrhage [None]
  - Endometriosis [None]
  - Incision site complication [None]
  - Wound dehiscence [None]
  - Procedural pain [None]
  - Infective tenosynovitis [None]
  - Joint swelling [None]
  - Pain in extremity [None]
  - Arthralgia [None]
  - Osteomyelitis [None]
  - Decubitus ulcer [None]
  - Fatigue [None]
